FAERS Safety Report 11074493 (Version 2)
Quarter: 2015Q3

REPORT INFORMATION
  Report Type: Spontaneous
  Country: EC (occurrence: EC)
  Receive Date: 20150429
  Receipt Date: 20150923
  Transmission Date: 20151125
  Serious: Yes (Hospitalization, Other)
  Sender: FDA-Public Use
  Company Number: EC-GLAXOSMITHKLINE-EC2015GSK053057

PATIENT
  Age: 35 Year
  Sex: Female

DRUGS (1)
  1. LAMICTAL [Suspect]
     Active Substance: LAMOTRIGINE
     Indication: PRODUCT USED FOR UNKNOWN INDICATION
     Dosage: 100 MG, BID
     Dates: start: 20150330

REACTIONS (6)
  - Leukaemia [Unknown]
  - Neutrophilia [Recovered/Resolved]
  - Stevens-Johnson syndrome [Recovered/Resolved]
  - Angioedema [Unknown]
  - Vertigo [Unknown]
  - Rash generalised [Unknown]
